FAERS Safety Report 8214673-9 (Version None)
Quarter: 2012Q1

REPORT INFORMATION
  Report Type: 
  Country: None (occurrence: None)
  Receive Date: 20120316
  Receipt Date: 20120313
  Transmission Date: 20120608
  Serious: Yes (Death, Hospitalization)
  Sender: FDA-Public Use
  Company Number: JP-JNJFOC-20100808645

PATIENT
  Sex: Female
  Weight: 62 kg

DRUGS (8)
  1. DOXORUBICIN HCL [Suspect]
     Indication: OVARIAN CANCER RECURRENT
     Dosage: CYCLE 5
     Route: 042
     Dates: start: 20100706, end: 20100706
  2. DOXORUBICIN HCL [Suspect]
     Dosage: CYCLES 1-4
     Route: 042
     Dates: start: 20100315, end: 20100315
  3. PYDOXAL [Concomitant]
     Indication: PROPHYLAXIS
     Route: 048
     Dates: start: 20100315, end: 20100802
  4. SODIUM GUALENATE [Concomitant]
     Indication: PROPHYLAXIS
     Route: 049
     Dates: start: 20100316, end: 20100727
  5. DOXORUBICIN HCL [Suspect]
     Route: 042
     Dates: start: 20100607, end: 20100607
  6. DOXORUBICIN HCL [Suspect]
     Route: 042
     Dates: start: 20100510, end: 20100510
  7. DOXORUBICIN HCL [Suspect]
     Route: 042
     Dates: start: 20100412, end: 20100412
  8. MUCOSTA [Concomitant]
     Indication: PROPHYLAXIS
     Route: 048
     Dates: start: 20100315, end: 20100802

REACTIONS (2)
  - OVARIAN CANCER RECURRENT [None]
  - PANCREATITIS ACUTE [None]
